FAERS Safety Report 7019672-0 (Version None)
Quarter: 2010Q3

REPORT INFORMATION
  Report Type: 
  Country: None (occurrence: None)
  Receive Date: 20100928
  Receipt Date: 20100928
  Transmission Date: 20110219
  Serious: Yes (Disabling)
  Sender: FDA-Public Use
  Company Number: None

PATIENT
  Sex: Female

DRUGS (2)
  1. METOCLOPRAMIDE [Suspect]
     Dosage: 10 MG ONCE IV
     Route: 042
     Dates: start: 20100605, end: 20100605
  2. PENICILLIN G [Suspect]
     Dosage: 1.2 MILLION UNITS ONCE IM
     Route: 030
     Dates: start: 20100605, end: 20100605

REACTIONS (1)
  - DYSPNOEA [None]
